FAERS Safety Report 21363717 (Version 15)
Quarter: 2023Q1

REPORT INFORMATION
  Report Type: Report from Study
  Country: US (occurrence: US)
  Receive Date: 20220922
  Receipt Date: 20230315
  Transmission Date: 20230418
  Serious: No
  Sender: FDA-Public Use
  Company Number: US-NOVARTISTESTPH-NVSC2022US212396

PATIENT
  Age: 61 Year
  Sex: Male

DRUGS (5)
  1. KESIMPTA [Suspect]
     Active Substance: OFATUMUMAB
     Indication: Product used for unknown indication
     Dosage: UNK
     Route: 065
  2. KESIMPTA [Suspect]
     Active Substance: OFATUMUMAB
     Dosage: UNK, QMO
     Route: 058
  3. GABAPENTIN [Concomitant]
     Active Substance: GABAPENTIN
     Indication: Product used for unknown indication
     Dosage: UNK
     Route: 065
  4. LYRICA [Concomitant]
     Active Substance: PREGABALIN
     Indication: Product used for unknown indication
     Dosage: UNK
     Route: 065
  5. COD LIVER OIL [Concomitant]
     Active Substance: COD LIVER OIL
     Indication: Product used for unknown indication
     Dosage: UNK
     Route: 065

REACTIONS (16)
  - Feeling abnormal [Unknown]
  - Feeling cold [Unknown]
  - Cough [Unknown]
  - Nasal congestion [Unknown]
  - Respiratory tract infection [Unknown]
  - Sinus headache [Unknown]
  - Balance disorder [Unknown]
  - Hypoaesthesia [Unknown]
  - Product storage error [Unknown]
  - Gastroenteritis viral [Unknown]
  - Headache [Unknown]
  - Pyrexia [Unknown]
  - Injection site pain [Unknown]
  - Drug ineffective [Unknown]
  - Upper respiratory tract infection [Unknown]
  - Inappropriate schedule of product administration [Unknown]

NARRATIVE: CASE EVENT DATE: 20221227
